FAERS Safety Report 22603521 (Version 4)
Quarter: 2024Q3

REPORT INFORMATION
  Report Type: Spontaneous
  Country: BR (occurrence: BR)
  Receive Date: 20230615
  Receipt Date: 20240808
  Transmission Date: 20241017
  Serious: Yes (Other)
  Sender: CELLTRION
  Company Number: BR-CELLTRION INC.-2023BR000324

PATIENT

DRUGS (2)
  1. INFLIXIMAB [Suspect]
     Active Substance: INFLIXIMAB
     Indication: Ankylosing spondylitis
     Dosage: 5 AMPOULES EVERY 8 WEEKS AND HAS BEEN UNDERGOING TREATMENT FOR APPROXIMATELY 4 YEARS
     Route: 042
     Dates: start: 20220908
  2. INFLIXIMAB [Suspect]
     Active Substance: INFLIXIMAB
     Dosage: UNK
     Dates: start: 20240729

REACTIONS (5)
  - Ankylosing spondylitis [Unknown]
  - Immunodeficiency [Unknown]
  - Influenza [Unknown]
  - Intentional dose omission [Unknown]
  - Therapeutic response shortened [Unknown]
